FAERS Safety Report 9241639 (Version 4)
Quarter: 2013Q2

REPORT INFORMATION
  Report Type: Spontaneous
  Country: US (occurrence: US)
  Receive Date: 20130419
  Receipt Date: 20130614
  Transmission Date: 20140414
  Serious: Yes (Life-Threatening, Hospitalization, Other)
  Sender: FDA-Public Use
  Company Number: US-B.I. PHARMACEUTICALS,INC./RIDGEFIELD-2013-BI-10575BP

PATIENT
  Age: 90 Year
  Sex: Female

DRUGS (6)
  1. PRADAXA [Suspect]
     Indication: ATRIAL FIBRILLATION
     Dosage: 300 MG
     Route: 048
  2. DIGOXIN [Concomitant]
     Dosage: 0.125 MG
     Route: 048
  3. DRONEDARONE [Concomitant]
  4. METOPROLOL [Concomitant]
     Dosage: 50 MG
     Route: 048
  5. MIRTAZEPINE [Concomitant]
     Dosage: 15 MG
     Route: 048
  6. ESCITALOPRAM [Concomitant]
     Dosage: 10 MG
     Route: 048

REACTIONS (3)
  - Subdural haematoma [Recovered/Resolved]
  - Subarachnoid haemorrhage [Recovered/Resolved]
  - Intraventricular haemorrhage [Recovered/Resolved]
